FAERS Safety Report 4828599-1 (Version None)
Quarter: 2005Q4

REPORT INFORMATION
  Report Type: 
  Country: None (occurrence: None)
  Receive Date: 20051115
  Receipt Date: 20050808
  Transmission Date: 20060501
  Serious: Yes (Hospitalization, Other)
  Sender: FDA-Public Use
  Company Number: PHBS2005JP11522

PATIENT
  Age: 52 Year
  Sex: Male

DRUGS (6)
  1. LANDEL [Concomitant]
     Dosage: UNK, UNK
     Route: 048
  2. DIOVAN [Suspect]
     Indication: HYPERTENSION
     Dosage: 80 MG, QD
     Route: 048
     Dates: start: 20050501, end: 20050801
  3. SELECTOL [Concomitant]
     Route: 048
  4. CONIEL [Concomitant]
     Route: 048
  5. FLUITRAN [Concomitant]
     Route: 048
  6. CALCIUM CHANNEL BLOCKERS [Concomitant]

REACTIONS (4)
  - ANAEMIA [None]
  - BLOOD CHOLESTEROL INCREASED [None]
  - BLOOD CREATINE PHOSPHOKINASE INCREASED [None]
  - BLOOD THYROID STIMULATING HORMONE INCREASED [None]
